FAERS Safety Report 25471501 (Version 1)
Quarter: 2025Q2

REPORT INFORMATION
  Report Type: Spontaneous
  Country: US (occurrence: US)
  Receive Date: 20250624
  Receipt Date: 20250624
  Transmission Date: 20250717
  Serious: No
  Sender: GLENMARK
  Company Number: US-GLENMARK PHARMACEUTICALS-2025GMK097380

PATIENT

DRUGS (1)
  1. MUPIROCIN [Suspect]
     Active Substance: MUPIROCIN
     Indication: Product used for unknown indication
     Dosage: UNK, BID (ONCE AT NINE IN THE MORNING AND AGAIN AROUND FOUR OR FIVE IN THE AFTERNOON)
     Route: 061

REACTIONS (2)
  - Product use issue [Unknown]
  - Product physical consistency issue [Unknown]
